FAERS Safety Report 9760173 (Version 1)
Quarter: 2013Q4

REPORT INFORMATION
  Report Type: Spontaneous
  Country: US (occurrence: US)
  Receive Date: 20131216
  Receipt Date: 20131216
  Transmission Date: 20140711
  Serious: No
  Sender: FDA-Public Use
  Company Number: US-BAYER-2013-150635

PATIENT
  Age: 25 Year
  Sex: Female

DRUGS (1)
  1. BEYAZ [Suspect]
     Indication: MENORRHAGIA
     Dosage: UNK
     Dates: start: 20131104

REACTIONS (2)
  - Metrorrhagia [None]
  - Drug dose omission [None]
